FAERS Safety Report 17180361 (Version 1)
Quarter: 2019Q4

REPORT INFORMATION
  Report Type: Spontaneous
  Country: BE (occurrence: BE)
  Receive Date: 20191219
  Receipt Date: 20191219
  Transmission Date: 20200122
  Serious: Yes (Other)
  Sender: FDA-Public Use
  Company Number: BE-TEVA-2019-BE-1151724

PATIENT

DRUGS (1)
  1. CARBOSIN 600 MG [Suspect]
     Active Substance: CARBOPLATIN
     Route: 065

REACTIONS (1)
  - Anaphylactic shock [Unknown]
